FAERS Safety Report 24384393 (Version 2)
Quarter: 2024Q4

REPORT INFORMATION
  Report Type: Spontaneous
  Country: ES (occurrence: ES)
  Receive Date: 20241001
  Receipt Date: 20241028
  Transmission Date: 20250115
  Serious: Yes (Other)
  Sender: ALEXION PHARMACEUTICALS
  Company Number: ES-AstraZeneca-CH-00707932A

PATIENT
  Age: 28 Year

DRUGS (4)
  1. ANIFROLUMAB [Suspect]
     Active Substance: ANIFROLUMAB
     Dosage: UNK
     Route: 065
  2. ANIFROLUMAB [Suspect]
     Active Substance: ANIFROLUMAB
     Dosage: UNK
  3. ANIFROLUMAB [Suspect]
     Active Substance: ANIFROLUMAB
     Dosage: UNK
     Route: 065
  4. ANIFROLUMAB [Suspect]
     Active Substance: ANIFROLUMAB
     Dosage: UNK

REACTIONS (1)
  - Toxic skin eruption [Unknown]
